FAERS Safety Report 19945988 (Version 1)
Quarter: 2021Q4

REPORT INFORMATION
  Report Type: Spontaneous
  Country: None (occurrence: US)
  Receive Date: 20211012
  Receipt Date: 20211012
  Transmission Date: 20220303
  Serious: Yes (Other)
  Sender: FDA-Public Use
  Company Number: US-ACELLA PHARMACEUTICALS, LLC-2120446

PATIENT
  Age: 11 Year
  Sex: Male

DRUGS (2)
  1. PHENYTOIN SODIUM [Suspect]
     Active Substance: PHENYTOIN SODIUM
     Indication: Product used for unknown indication
     Route: 065
  2. PENICILLIN [Concomitant]
     Active Substance: PENICILLIN

REACTIONS (7)
  - Poisoning [Recovered/Resolved]
  - Cerebellar atrophy [Recovered/Resolved]
  - Drug screen false positive [Unknown]
  - Tremor [Recovered/Resolved]
  - Speech disorder [Recovered/Resolved]
  - Diplopia [Recovered/Resolved]
  - Dysarthria [Recovered/Resolved]
